FAERS Safety Report 4533957-9 (Version None)
Quarter: 2004Q4

REPORT INFORMATION
  Report Type: 
  Country: None (occurrence: None)
  Receive Date: 20041221
  Receipt Date: 20041221
  Transmission Date: 20050328
  Serious: Yes (Hospitalization)
  Sender: FDA-Public Use
  Company Number: None

PATIENT
  Sex: Male
  Weight: 81 kg

DRUGS (8)
  1. CISPLATIN [Suspect]
     Indication: METASTASIS
     Dosage: 100MG/M2   Q3 WEEKS  INTRAVENOUS
     Route: 042
     Dates: start: 20041026, end: 20041214
  2. CISPLATIN [Suspect]
     Indication: TONGUE NEOPLASM MALIGNANT STAGE UNSPECIFIED
     Dosage: 100MG/M2   Q3 WEEKS  INTRAVENOUS
     Route: 042
     Dates: start: 20041026, end: 20041214
  3. ANZEMET [Concomitant]
  4. COMPAZINE [Concomitant]
  5. EMEND [Concomitant]
  6. SODIUM CHLORIDE 0.9% [Concomitant]
  7. ROXICET [Concomitant]
  8. FENTANYL [Concomitant]

REACTIONS (6)
  - CONSTIPATION [None]
  - DIARRHOEA [None]
  - DYSPHAGIA [None]
  - NAUSEA [None]
  - STOMATITIS [None]
  - VOMITING [None]
